FAERS Safety Report 25017770 (Version 3)
Quarter: 2025Q4

REPORT INFORMATION
  Report Type: Spontaneous
  Country: US (occurrence: US)
  Receive Date: 20250227
  Receipt Date: 20251023
  Transmission Date: 20260117
  Serious: Yes (Other)
  Sender: COOPERSURGICAL
  Company Number: US-COOPERSURGICAL, INC.-2025CPS001130

PATIENT
  Age: 27 Year
  Sex: Female
  Weight: 57.596 kg

DRUGS (1)
  1. PARAGARD T 380A [Suspect]
     Active Substance: COPPER
     Indication: Contraception
     Dosage: UNK
     Route: 015
     Dates: start: 20020901, end: 20100310

REACTIONS (22)
  - Reproductive complication associated with device [Not Recovered/Not Resolved]
  - Infertility female [Unknown]
  - Abortion spontaneous [Recovered/Resolved]
  - Suicidal ideation [Unknown]
  - Device breakage [Recovered/Resolved]
  - Foreign body in reproductive tract [Recovered/Resolved]
  - Complication of device removal [Recovered/Resolved]
  - Embedded device [Recovered/Resolved]
  - Pregnancy with contraceptive device [Recovered/Resolved]
  - Drug ineffective [Unknown]
  - Depression [Unknown]
  - Premenstrual dysphoric disorder [Unknown]
  - Emotional disorder [Unknown]
  - Anxiety [Unknown]
  - Hormone level abnormal [Unknown]
  - Sexual dysfunction [Unknown]
  - Device dislocation [Recovered/Resolved]
  - Pelvic pain [Recovered/Resolved]
  - Sensation of foreign body [Unknown]
  - Menstrual disorder [Unknown]
  - Intermenstrual bleeding [Unknown]
  - Dysmenorrhoea [Unknown]

NARRATIVE: CASE EVENT DATE: 20040201
